FAERS Safety Report 14427215 (Version 1)
Quarter: 2018Q1

REPORT INFORMATION
  Report Type: Spontaneous
  Country: US (occurrence: US)
  Receive Date: 20180123
  Receipt Date: 20180123
  Transmission Date: 20180509
  Serious: No
  Sender: FDA-Public Use
  Company Number: US-IMPAX LABORATORIES, INC-2017-IPXL-02940

PATIENT
  Age: 73 Year
  Sex: Male
  Weight: 68 kg

DRUGS (19)
  1. POTASSIUM [Concomitant]
     Active Substance: POTASSIUM
     Indication: MUSCLE SPASMS
     Dosage: UNK
     Route: 065
  2. VITAMIN B12 [Concomitant]
     Active Substance: CYANOCOBALAMIN
     Indication: MUSCLE SPASMS
     Dosage: UNK
     Route: 065
  3. TYLENOL [Concomitant]
     Active Substance: ACETAMINOPHEN
     Indication: MIGRAINE
     Dosage: UNK
     Route: 065
  4. DONEPEZIL. [Concomitant]
     Active Substance: DONEPEZIL
     Indication: DEMENTIA
     Dosage: 10 MG, UNK
     Route: 065
  5. VITAMIN B1 [Concomitant]
     Active Substance: THIAMINE HYDROCHLORIDE
     Indication: SUPPLEMENTATION THERAPY
     Dosage: UNK
     Route: 065
  6. MULTIVITAMIN [Concomitant]
     Active Substance: VITAMINS
     Indication: SUPPLEMENTATION THERAPY
     Dosage: UNK
     Route: 065
  7. OXYBUTYNIN. [Concomitant]
     Active Substance: OXYBUTYNIN CHLORIDE
     Indication: INCONTINENCE
     Dosage: UNK
     Route: 065
  8. RYTARY [Suspect]
     Active Substance: CARBIDOPA\LEVODOPA
     Indication: PARKINSON^S DISEASE
     Dosage: UNK
     Route: 048
  9. RYTARY [Suspect]
     Active Substance: CARBIDOPA\LEVODOPA
     Dosage: 23.75/ 95MG, UNK
     Route: 048
  10. COLACE [Concomitant]
     Active Substance: DOCUSATE SODIUM
     Indication: CONSTIPATION
     Dosage: UNK
     Route: 065
  11. RYTARY [Suspect]
     Active Substance: CARBIDOPA\LEVODOPA
     Dosage: 61.25/245 MG, ONE CAPSULE 4 TIMES DAILY
     Route: 048
  12. RYTARY [Suspect]
     Active Substance: CARBIDOPA\LEVODOPA
     Dosage: 48.75/195 MG, ONE CAPSULE FOUR TIMES DAILY
     Route: 048
  13. CLONAZEPAM. [Concomitant]
     Active Substance: CLONAZEPAM
     Indication: NIGHTMARE
     Dosage: 5 MG, UNK
     Route: 065
  14. TYLENOL [Concomitant]
     Active Substance: ACETAMINOPHEN
     Indication: PAIN
  15. EXCEDRIN [Concomitant]
     Active Substance: ACETAMINOPHEN\ASPIRIN\CAFFEINE
     Indication: MIGRAINE
     Dosage: UNK
     Route: 065
  16. RYTARY [Suspect]
     Active Substance: CARBIDOPA\LEVODOPA
     Dosage: 61.25/245 MG, ONE CAPSULE THREE TIMES DAILY
     Route: 048
  17. CALCIUM [Concomitant]
     Active Substance: CALCIUM
     Indication: MUSCLE SPASMS
     Dosage: UNK
     Route: 065
  18. MAGNESIUM CITRATE. [Concomitant]
     Active Substance: MAGNESIUM CITRATE
     Indication: MUSCLE SPASMS
     Dosage: UNK
     Route: 065
  19. EPSOM SALT [Concomitant]
     Active Substance: MAGNESIUM SULFATE
     Indication: MUSCLE SPASMS
     Dosage: UNK
     Route: 065

REACTIONS (2)
  - Gastrointestinal disorder [Not Recovered/Not Resolved]
  - Tremor [Not Recovered/Not Resolved]
